FAERS Safety Report 23748480 (Version 1)
Quarter: 2024Q2

REPORT INFORMATION
  Report Type: Spontaneous
  Country: US (occurrence: None)
  Receive Date: 20240416
  Receipt Date: 20240416
  Transmission Date: 20240715
  Serious: Yes (Hospitalization)
  Sender: FDA-Public Use
  Company Number: 2024A088109

PATIENT
  Age: 68 Year
  Sex: Female

DRUGS (6)
  1. LISINOPRIL [Suspect]
     Active Substance: LISINOPRIL
     Route: 048
  2. LISINOPRIL [Suspect]
     Active Substance: LISINOPRIL
     Route: 048
  3. LOKELMA [Suspect]
     Active Substance: SODIUM ZIRCONIUM CYCLOSILICATE
     Indication: Hyperkalaemia
     Route: 048
  4. FUROSEMIDE [Concomitant]
     Active Substance: FUROSEMIDE
  5. AMILORIDE [Concomitant]
     Active Substance: AMILORIDE
     Indication: Polyuria
  6. AMILORIDE [Concomitant]
     Active Substance: AMILORIDE
     Indication: Blood potassium abnormal

REACTIONS (2)
  - Acute kidney injury [Unknown]
  - Drug resistance [Unknown]
